FAERS Safety Report 23148471 (Version 1)
Quarter: 2023Q4

REPORT INFORMATION
  Report Type: Spontaneous
  Country: US (occurrence: US)
  Receive Date: 20231106
  Receipt Date: 20231106
  Transmission Date: 20240110
  Serious: No
  Sender: FDA-Public Use
  Company Number: US-PFIZER INC-202300352093

PATIENT
  Age: 77 Year
  Sex: Female
  Weight: 86.18 kg

DRUGS (1)
  1. PAXLOVID [Suspect]
     Active Substance: NIRMATRELVIR\RITONAVIR
     Indication: COVID-19
     Dosage: TOOK 3 LAST NIGHT AT ABOUT 11 O^CLOCK AND I TOOK 3 THIS MORNING AT 9 AM
     Route: 048

REACTIONS (1)
  - Dysgeusia [Unknown]
